FAERS Safety Report 14032613 (Version 3)
Quarter: 2017Q4

REPORT INFORMATION
  Report Type: Spontaneous
  Country: AR (occurrence: AR)
  Receive Date: 20171003
  Receipt Date: 20171201
  Transmission Date: 20180321
  Serious: Yes (Other)
  Sender: FDA-Public Use
  Company Number: AR-ROCHE-1985858

PATIENT
  Age: 80 Year
  Sex: Female

DRUGS (8)
  1. GAZYVA [Suspect]
     Active Substance: OBINUTUZUMAB
     Dosage: CYCLE 1 DAY 15
     Route: 042
     Dates: start: 20170724
  2. GAZYVA [Suspect]
     Active Substance: OBINUTUZUMAB
     Indication: CHRONIC LYMPHOCYTIC LEUKAEMIA
     Dosage: CYCLE 1 DAY 1
     Route: 042
     Dates: start: 20170710
  3. GAZYVA [Suspect]
     Active Substance: OBINUTUZUMAB
     Dosage: CYCLE 1 DAY 8
     Route: 042
     Dates: start: 20170717
  4. GAZYVA [Suspect]
     Active Substance: OBINUTUZUMAB
     Dosage: CYCLE 3
     Route: 042
     Dates: start: 20170911
  5. GAZYVA [Suspect]
     Active Substance: OBINUTUZUMAB
     Dosage: CYCLE 1 DAY 2
     Route: 042
     Dates: start: 20170711
  6. GAZYVA [Suspect]
     Active Substance: OBINUTUZUMAB
     Dosage: CYCLE 2
     Route: 042
     Dates: start: 20170807
  7. GAZYVA [Suspect]
     Active Substance: OBINUTUZUMAB
     Dosage: CYCLE 3
     Route: 042
     Dates: start: 20170911
  8. GAZYVA [Suspect]
     Active Substance: OBINUTUZUMAB
     Dosage: CYCLE 4
     Route: 042
     Dates: start: 20171015

REACTIONS (3)
  - Off label use [Unknown]
  - Infusion related reaction [Recovered/Resolved]
  - Intentional product use issue [Unknown]

NARRATIVE: CASE EVENT DATE: 20170710
